FAERS Safety Report 23638418 (Version 1)
Quarter: 2024Q1

REPORT INFORMATION
  Report Type: Spontaneous
  Country: FR (occurrence: FR)
  Receive Date: 20240315
  Receipt Date: 20240315
  Transmission Date: 20240410
  Serious: Yes (Other)
  Sender: FDA-Public Use
  Company Number: FR-009507513-2402FRA000621

PATIENT
  Age: 47 Year
  Sex: Female
  Weight: 55 kg

DRUGS (9)
  1. CARBOPLATIN [Suspect]
     Active Substance: CARBOPLATIN
     Indication: Triple negative breast cancer
     Dosage: 1.5 AREA UNDER CURVE (AUC) EVERY 7 DAYS.
     Route: 042
     Dates: start: 20231115
  2. PACLITAXEL [Suspect]
     Active Substance: PACLITAXEL
     Indication: Triple negative breast cancer
     Dosage: 80 MG/M2, WEEKLY
     Route: 042
     Dates: start: 20231115
  3. KEYTRUDA [Suspect]
     Active Substance: PEMBROLIZUMAB
     Indication: Triple negative breast cancer
     Dosage: 200 MG, EVERY 3 WEEKS
     Route: 042
     Dates: start: 20231115, end: 20231115
  4. KEYTRUDA [Suspect]
     Active Substance: PEMBROLIZUMAB
     Dosage: 200 MG, EVERY 3 WEEKS
     Route: 042
     Dates: start: 20231206, end: 20231206
  5. KEYTRUDA [Suspect]
     Active Substance: PEMBROLIZUMAB
     Dosage: 200 MG, EVERY 3 WEEKS
     Route: 042
     Dates: start: 20231227, end: 20231227
  6. KEYTRUDA [Suspect]
     Active Substance: PEMBROLIZUMAB
     Dosage: 200 MG, EVERY 3 WEEKS
     Route: 042
     Dates: start: 20240114
  7. ONDANSETRON [Concomitant]
     Active Substance: ONDANSETRON
     Indication: Prophylaxis
     Dosage: 7 DAYS
     Dates: start: 20231115
  8. POLARAMINE [Concomitant]
     Active Substance: DEXCHLORPHENIRAMINE MALEATE
     Indication: Prophylaxis
     Dosage: 7 DAYS
     Dates: start: 20231115
  9. SOLU-MEDROL [Concomitant]
     Active Substance: METHYLPREDNISOLONE SODIUM SUCCINATE
     Indication: Prophylaxis
     Dosage: 7 DAYS
     Dates: start: 20231115

REACTIONS (3)
  - Hepatotoxicity [Recovering/Resolving]
  - Endocrine toxicity [Recovering/Resolving]
  - Glucocorticoid deficiency [Recovering/Resolving]

NARRATIVE: CASE EVENT DATE: 20231226
